FAERS Safety Report 14500296 (Version 2)
Quarter: 2019Q1

REPORT INFORMATION
  Report Type: Report from Study
  Country: CA (occurrence: CA)
  Receive Date: 20180207
  Receipt Date: 20190117
  Transmission Date: 20190417
  Serious: Yes (Hospitalization, Other)
  Sender: FDA-Public Use
  Company Number: CA-BEH-2018086522

PATIENT
  Age: 35 Year
  Sex: Female

DRUGS (2)
  1. BERINERT [Suspect]
     Active Substance: HUMAN C1-ESTERASE INHIBITOR
     Indication: PROPHYLAXIS
  2. BERINERT [Suspect]
     Active Substance: HUMAN C1-ESTERASE INHIBITOR
     Indication: HEREDITARY ANGIOEDEMA
     Dosage: 2500 IU, QOD
     Route: 042
     Dates: start: 20151118

REACTIONS (12)
  - Aspiration [Unknown]
  - Central venous catheterisation [Unknown]
  - Nerve injury [Unknown]
  - Pleural effusion [Unknown]
  - Cough [Unknown]
  - Pain in extremity [Unknown]
  - Chest pain [Unknown]
  - Medical device site haemorrhage [Recovered/Resolved]
  - Complication associated with device [Unknown]
  - Pharyngeal oedema [Unknown]
  - Malaise [Unknown]
  - Hereditary angioedema [Unknown]

NARRATIVE: CASE EVENT DATE: 201801
